FAERS Safety Report 6250152-6 (Version None)
Quarter: 2009Q2

REPORT INFORMATION
  Report Type: 
  Country: None (occurrence: None)
  Receive Date: 20090626
  Receipt Date: 20090618
  Transmission Date: 20091009
  Serious: Yes (Hospitalization)
  Sender: FDA-Public Use
  Company Number: DSA_33884_2009

PATIENT
  Sex: Male

DRUGS (4)
  1. XENAZINE [Suspect]
     Indication: TOURETTE'S DISORDER
     Dosage: (25 MG TID)
     Dates: start: 20090301, end: 20090605
  2. PROZAC /00724402/ [Concomitant]
  3. SINGULAIR /01362602/ [Concomitant]
  4. ZYRTEC [Concomitant]

REACTIONS (4)
  - BIPOLAR DISORDER [None]
  - SELF-INJURIOUS IDEATION [None]
  - SUICIDAL IDEATION [None]
  - VIOLENCE-RELATED SYMPTOM [None]
